FAERS Safety Report 12122491 (Version 3)
Quarter: 2016Q2

REPORT INFORMATION
  Report Type: Report from Study
  Country: FR (occurrence: FR)
  Receive Date: 20160226
  Receipt Date: 20160418
  Transmission Date: 20160815
  Serious: Yes (Hospitalization)
  Sender: FDA-Public Use
  Company Number: FR-BIOGEN-2016BI00192328

PATIENT
  Age: 60 Year
  Sex: Female
  Weight: 58 kg

DRUGS (5)
  1. BG00012 [Suspect]
     Active Substance: DIMETHYL FUMARATE
     Indication: MULTIPLE SCLEROSIS
     Route: 048
     Dates: start: 20141218
  2. CACIT [Concomitant]
     Active Substance: CALCIUM\VITAMIN D
     Indication: OSTEOPOROSIS PROPHYLAXIS
     Dates: start: 20130615
  3. MONOPOST [Concomitant]
     Indication: GLAUCOMA
     Dates: start: 20120601
  4. GINKGO BILOBA [Concomitant]
     Active Substance: GINKGO
     Indication: VISUAL FIELD DEFECT
     Route: 048
     Dates: start: 20141112
  5. FLORGYNAL [Concomitant]
     Indication: PROPHYLAXIS
     Route: 048
     Dates: start: 20090101

REACTIONS (2)
  - Colpocele [Recovered/Resolved]
  - Uterine prolapse [Recovered/Resolved]

NARRATIVE: CASE EVENT DATE: 20151123
